FAERS Safety Report 13996187 (Version 1)
Quarter: 2017Q3

REPORT INFORMATION
  Report Type: Spontaneous
  Country: CN (occurrence: CN)
  Receive Date: 20170921
  Receipt Date: 20170921
  Transmission Date: 20171128
  Serious: Yes (Death, Other)
  Sender: FDA-Public Use
  Company Number: CN-NOVOPROD-563742

PATIENT
  Age: 86 Year
  Sex: Female

DRUGS (1)
  1. NOVOMIX [Suspect]
     Active Substance: INSULIN ASPART
     Indication: PRODUCT USED FOR UNKNOWN INDICATION
     Dosage: 1200 IU,
     Route: 058

REACTIONS (2)
  - Victim of homicide [Fatal]
  - Intentional overdose [Fatal]
